FAERS Safety Report 20705958 (Version 8)
Quarter: 2022Q4

REPORT INFORMATION
  Report Type: Report from Study
  Country: US (occurrence: US)
  Receive Date: 20220413
  Receipt Date: 20221228
  Transmission Date: 20230112
  Serious: Yes (Hospitalization, Other)
  Sender: FDA-Public Use
  Company Number: US-NOVARTISPH-NVSC2022US083561

PATIENT
  Sex: Male
  Weight: 97.506 kg

DRUGS (4)
  1. TREPROSTINIL [Suspect]
     Active Substance: TREPROSTINIL
     Indication: Pulmonary arterial hypertension
     Dosage: 19 NG/KG/MIN, CONT
     Route: 042
     Dates: start: 20210913
  2. TREPROSTINIL [Suspect]
     Active Substance: TREPROSTINIL
     Dosage: 19 NG/KG/MIN, CONT
     Route: 042
  3. TREPROSTINIL [Suspect]
     Active Substance: TREPROSTINIL
     Dosage: 19 NG/KG/MIN, CONT
     Route: 042
  4. TADALAFIL [Concomitant]
     Active Substance: TADALAFIL
     Indication: Product used for unknown indication
     Dosage: UNK
     Route: 065

REACTIONS (8)
  - Septic shock [Unknown]
  - Pneumonia [Unknown]
  - Blood potassium decreased [Unknown]
  - Dyspnoea [Unknown]
  - Chest pain [Unknown]
  - Lymphoma [Unknown]
  - Suture related complication [Unknown]
  - Dyspnoea exertional [Unknown]
